FAERS Safety Report 4853743-X (Version None)
Quarter: 2005Q4

REPORT INFORMATION
  Report Type: 
  Country: None (occurrence: None)
  Receive Date: 20051212
  Receipt Date: 20051128
  Transmission Date: 20060501
  Serious: Yes (Hospitalization)
  Sender: FDA-Public Use
  Company Number: 2005164000

PATIENT
  Age: 75 Year
  Sex: Male
  Weight: 84 kg

DRUGS (6)
  1. GABAPENTIN [Suspect]
     Indication: POST HERPETIC NEURALGIA
     Dosage: 3200 MG (800 MG, 4 IN 1 D),
  2. ASPIRIN [Suspect]
     Indication: ILL-DEFINED DISORDER
  3. ACYCLOVIR [Suspect]
     Indication: ILL-DEFINED DISORDER
  4. FUROSEMIDE [Suspect]
     Indication: ILL-DEFINED DISORDER
  5. CARVEDILOL [Suspect]
     Indication: ILL-DEFINED DISORDER
  6. RAMIPRIL [Suspect]
     Indication: ILL-DEFINED DISORDER

REACTIONS (11)
  - ASTHENIA [None]
  - BLOOD LACTATE DEHYDROGENASE INCREASED [None]
  - FALL [None]
  - HYPOTENSION [None]
  - JUGULAR VEIN DISTENSION [None]
  - MENTAL STATUS CHANGES [None]
  - MUCOUS MEMBRANE DISORDER [None]
  - MUSCLE SPASMS [None]
  - MYOCLONUS [None]
  - RENAL FAILURE ACUTE [None]
  - TUMOUR LYSIS SYNDROME [None]
